FAERS Safety Report 22214771 (Version 1)
Quarter: 2023Q2

REPORT INFORMATION
  Report Type: Report from Study
  Country: US (occurrence: US)
  Receive Date: 20230415
  Receipt Date: 20230415
  Transmission Date: 20230721
  Serious: No
  Sender: FDA-Public Use
  Company Number: US-002147023-NVSC2023US086551

PATIENT
  Sex: Female

DRUGS (1)
  1. ENTRESTO [Suspect]
     Active Substance: SACUBITRIL\VALSARTAN
     Indication: Product used for unknown indication
     Dosage: 0.5 DOSAGE FORM (49/51 MG)
     Route: 065

REACTIONS (5)
  - Dyspnoea [Unknown]
  - Drug intolerance [Unknown]
  - Chest pain [Unknown]
  - Hypotension [Unknown]
  - Wrong technique in product usage process [Unknown]
